FAERS Safety Report 9379205 (Version 1)
Quarter: 2013Q2

REPORT INFORMATION
  Report Type: Spontaneous
  Country: US (occurrence: None)
  Receive Date: 20130626
  Receipt Date: 20130626
  Transmission Date: 20140414
  Serious: Yes (Hospitalization, Other)
  Sender: FDA-Public Use
  Company Number: JPI-P-033034

PATIENT
  Age: 42 Year
  Sex: Female

DRUGS (2)
  1. XYREM(500 MILLIGRAM/MILLILITERS, SOLUTION)(SODIUM OXYBATE) [Suspect]
     Indication: CATAPLEXY
     Dosage: 4.5 GM (2.25 GM,2 IN 1 D)
     Route: 048
     Dates: start: 20130206, end: 2013
  2. VANCOMYCIN [Suspect]
     Indication: PRODUCT USED FOR UNKNOWN INDICATION
     Dates: start: 2013, end: 2013

REACTIONS (5)
  - Cellulitis [None]
  - Septic shock [None]
  - Renal failure acute [None]
  - Hypotension [None]
  - Toxicity to various agents [None]
